FAERS Safety Report 5381200-3 (Version None)
Quarter: 2007Q3

REPORT INFORMATION
  Report Type: 
  Country: None (occurrence: None)
  Receive Date: 20070706
  Receipt Date: 20070629
  Transmission Date: 20080115
  Serious: Yes (Hospitalization, Other)
  Sender: FDA-Public Use
  Company Number: US-MERCK-0703USA04793

PATIENT
  Age: 60 Year
  Sex: Female

DRUGS (10)
  1. FOSAMAX [Suspect]
     Indication: OSTEOPOROSIS
     Route: 048
     Dates: start: 19960101, end: 19970101
  2. FOSAMAX [Suspect]
     Route: 048
     Dates: start: 19980101, end: 20060420
  3. FOSAMAX [Suspect]
     Indication: OSTEOPENIA
     Route: 048
     Dates: start: 19960101, end: 19970101
  4. FOSAMAX [Suspect]
     Route: 048
     Dates: start: 19980101, end: 20060420
  5. SYNTHROID [Concomitant]
     Indication: THYROID DISORDER
     Route: 065
     Dates: start: 19660101
  6. DURATUSS [Concomitant]
     Indication: SINUS DISORDER
     Route: 065
     Dates: start: 19970101
  7. ZOMIG [Concomitant]
     Indication: MIGRAINE
     Route: 065
     Dates: start: 19990101
  8. ETODOLAC [Concomitant]
     Route: 065
     Dates: start: 19970101
  9. [THERAPY UNSPECIFIED] [Concomitant]
     Route: 065
     Dates: start: 19750101
  10. [THERAPY UNSPECIFIED] [Concomitant]
     Route: 065
     Dates: start: 19990101

REACTIONS (24)
  - ABDOMINAL DISCOMFORT [None]
  - ANXIETY [None]
  - ARTHRITIS [None]
  - BONE DISORDER [None]
  - CHEST PAIN [None]
  - DEPRESSION [None]
  - DYSGEUSIA [None]
  - EPISTAXIS [None]
  - FEAR [None]
  - HAEMATEMESIS [None]
  - HYPERTENSION [None]
  - HYPOKALAEMIA [None]
  - JAW FRACTURE [None]
  - LYMPHADENOPATHY [None]
  - MIGRAINE [None]
  - MUSCULOSKELETAL DISORDER [None]
  - NAUSEA [None]
  - OEDEMA [None]
  - ORAL CANDIDIASIS [None]
  - OSTEOMYELITIS [None]
  - OSTEONECROSIS [None]
  - PHARYNGOLARYNGEAL PAIN [None]
  - TINNITUS [None]
  - VOMITING [None]
